FAERS Safety Report 17622867 (Version 1)
Quarter: 2020Q2

REPORT INFORMATION
  Report Type: Spontaneous
  Country: US (occurrence: US)
  Receive Date: 20200403
  Receipt Date: 20200403
  Transmission Date: 20200713
  Serious: No
  Sender: FDA-Public Use
  Company Number: US-PFIZER INC-2020137856

PATIENT
  Age: 49 Year
  Sex: Female

DRUGS (1)
  1. PREGABALIN. [Suspect]
     Active Substance: PREGABALIN

REACTIONS (2)
  - Drug hypersensitivity [Unknown]
  - Pain [Unknown]
